FAERS Safety Report 5739726-6 (Version None)
Quarter: 2008Q2

REPORT INFORMATION
  Report Type: 
  Country: None (occurrence: None)
  Receive Date: 20080512
  Receipt Date: 20080512
  Transmission Date: 20081010
  Serious: Yes (Life-Threatening)
  Sender: FDA-Public Use
  Company Number: None

PATIENT
  Age: 61 Year
  Sex: Male

DRUGS (2)
  1. OXYCODONE SR 40MG [Suspect]
     Indication: PAIN
     Dosage: 40MG ONCE PO  ONCE - PREOP
     Route: 048
  2. FENTANYL [Suspect]
     Indication: PAIN
     Dosage: 150MCG TOTAL IV  POST-OP DAY
     Route: 042

REACTIONS (3)
  - CARDIO-RESPIRATORY ARREST [None]
  - POST PROCEDURAL COMPLICATION [None]
  - SLEEP APNOEA SYNDROME [None]
